FAERS Safety Report 19916828 (Version 1)
Quarter: 2021Q4

REPORT INFORMATION
  Report Type: Spontaneous
  Country: US (occurrence: US)
  Receive Date: 20211004
  Receipt Date: 20211004
  Transmission Date: 20220303
  Serious: Yes (Disabling)
  Sender: FDA-Public Use
  Company Number: None

PATIENT
  Age: 38 Year
  Sex: Female
  Weight: 68.4 kg

DRUGS (4)
  1. SCOPOLAMINE [Suspect]
     Active Substance: SCOPOLAMINE
     Indication: Motion sickness
     Dosage: ?QUANTITY:1 PATCH(ES);?OTHER FREQUENCY:1 EVERY 3 DAYS;
     Route: 062
  2. COVID-19 VACCINE NOS [Suspect]
     Active Substance: COVID-19 VACCINE NOS
  3. LEVOMEFOLATE CALCIUM [Concomitant]
     Active Substance: LEVOMEFOLATE CALCIUM
  4. VITAMINS [Concomitant]
     Active Substance: VITAMINS

REACTIONS (9)
  - Headache [None]
  - Dizziness [None]
  - Nausea [None]
  - Coordination abnormal [None]
  - Photophobia [None]
  - Disturbance in attention [None]
  - Withdrawal syndrome [None]
  - Vision blurred [None]
  - Gait disturbance [None]

NARRATIVE: CASE EVENT DATE: 20211002
